FAERS Safety Report 21626798 (Version 1)
Quarter: 2022Q4

REPORT INFORMATION
  Report Type: Spontaneous
  Country: US (occurrence: None)
  Receive Date: 20221122
  Receipt Date: 20221122
  Transmission Date: 20230113
  Serious: No
  Sender: FDA-Public Use
  Company Number: US-Noden Pharma DAC-NOD202208-000015

PATIENT
  Sex: Female

DRUGS (1)
  1. ALISKIREN [Suspect]
     Active Substance: ALISKIREN
     Indication: Product used for unknown indication
     Dosage: UNKNOWN

REACTIONS (3)
  - Fatigue [Unknown]
  - Vomiting projectile [Unknown]
  - Diarrhoea [Unknown]
